FAERS Safety Report 6160433-2 (Version None)
Quarter: 2009Q2

REPORT INFORMATION
  Report Type: 
  Country: None (occurrence: None)
  Receive Date: 20090415
  Receipt Date: 20090415
  Transmission Date: 20091009
  Serious: No
  Sender: FDA-Public Use
  Company Number: None

PATIENT
  Sex: Male
  Weight: 73.18 kg

DRUGS (12)
  1. LISINOPRIL [Suspect]
     Dosage: 5MG TABLET QD ORAL
     Route: 048
     Dates: start: 20080902, end: 20090414
  2. AMBIEN [Concomitant]
  3. COMBIVENT [Concomitant]
  4. FLOVENT [Concomitant]
  5. HYDROCHLOROTHIAZIDE [Concomitant]
  6. LORAZEPAM [Concomitant]
  7. NAPROSYN [Concomitant]
  8. PRILOSEC [Concomitant]
  9. REGLAN [Concomitant]
  10. TRAZODONE [Concomitant]
  11. TYLENOL W/ CODEINE NO. 3 [Concomitant]
  12. ZOLOFT [Concomitant]

REACTIONS (1)
  - HEADACHE [None]
